FAERS Safety Report 25855691 (Version 5)
Quarter: 2025Q4

REPORT INFORMATION
  Report Type: Spontaneous
  Country: JP (occurrence: JP)
  Receive Date: 20250927
  Receipt Date: 20251231
  Transmission Date: 20260117
  Serious: Yes (Other)
  Sender: JOHNSON AND JOHNSON
  Company Number: JP-JNJFOC-20250932744

PATIENT
  Age: 54 Year
  Sex: Female
  Weight: 68.7 kg

DRUGS (38)
  1. OPSUMIT [Suspect]
     Active Substance: MACITENTAN
     Indication: Pulmonary arterial hypertension
     Dosage: DOSE UNKNOWN
     Route: 048
     Dates: start: 20200520
  2. OPSUMIT [Suspect]
     Active Substance: MACITENTAN
     Indication: Pulmonary arterial hypertension
  3. UPTRAVI [Suspect]
     Active Substance: SELEXIPAG
     Indication: Pulmonary arterial hypertension
     Dosage: UNKNOWN, INCREASED ONCE A WEEK
     Route: 048
     Dates: start: 202006, end: 202006
  4. UPTRAVI [Suspect]
     Active Substance: SELEXIPAG
     Indication: Pulmonary arterial hypertension
     Route: 048
     Dates: start: 202006, end: 202006
  5. UPTRAVI [Suspect]
     Active Substance: SELEXIPAG
     Dosage: UNKNOWN, INCREASED ONCE A WEEK
     Route: 048
     Dates: start: 202006, end: 202006
  6. UPTRAVI [Suspect]
     Active Substance: SELEXIPAG
     Route: 048
     Dates: start: 20200628, end: 2020
  7. UPTRAVI [Suspect]
     Active Substance: SELEXIPAG
     Route: 048
     Dates: start: 202007, end: 202007
  8. UPTRAVI [Suspect]
     Active Substance: SELEXIPAG
     Route: 048
     Dates: start: 20200705, end: 202007
  9. UPTRAVI [Suspect]
     Active Substance: SELEXIPAG
     Route: 048
     Dates: start: 20200712
  10. UPTRAVI [Suspect]
     Active Substance: SELEXIPAG
     Route: 048
     Dates: start: 20200531
  11. UPTRAVI [Suspect]
     Active Substance: SELEXIPAG
     Route: 048
     Dates: start: 20200527, end: 2020
  12. FUROSEMIDE [Suspect]
     Active Substance: FUROSEMIDE
     Indication: Pulmonary arterial hypertension
     Dates: start: 20200406, end: 202004
  13. FUROSEMIDE [Suspect]
     Active Substance: FUROSEMIDE
     Indication: Cardiothoracic ratio increased
     Dates: start: 202004, end: 20200421
  14. FUROSEMIDE [Suspect]
     Active Substance: FUROSEMIDE
     Indication: Right ventricular failure
     Dates: start: 20200507, end: 20200520
  15. FUROSEMIDE [Suspect]
     Active Substance: FUROSEMIDE
     Indication: Heart failure with preserved ejection fraction
     Dates: start: 20200628, end: 20200712
  16. DOBUTAMINE HYDROCHLORIDE [Suspect]
     Active Substance: DOBUTAMINE HYDROCHLORIDE
     Indication: Pulmonary arterial hypertension
     Dosage: 2 GAMMA
  17. DOBUTAMINE HYDROCHLORIDE [Suspect]
     Active Substance: DOBUTAMINE HYDROCHLORIDE
     Indication: Pulmonary arterial hypertension
     Dosage: 5 GAMMA
  18. DOBUTAMINE HYDROCHLORIDE [Suspect]
     Active Substance: DOBUTAMINE HYDROCHLORIDE
     Dosage: 3 GAMMA
  19. DOBUTAMINE HYDROCHLORIDE [Suspect]
     Active Substance: DOBUTAMINE HYDROCHLORIDE
     Dosage: 2 GAMMA
  20. DOBUTAMINE HYDROCHLORIDE [Suspect]
     Active Substance: DOBUTAMINE HYDROCHLORIDE
     Dosage: 3 GAMMA
  21. DOBUTAMINE HYDROCHLORIDE [Suspect]
     Active Substance: DOBUTAMINE HYDROCHLORIDE
     Dosage: 2 GAMMA
  22. ADCIRCA [Suspect]
     Active Substance: TADALAFIL
     Indication: Pulmonary arterial hypertension
     Dosage: DOSE UNKNOWN
     Dates: start: 20200407
  23. ADCIRCA [Suspect]
     Active Substance: TADALAFIL
     Indication: Pulmonary arterial hypertension
  24. AMBRISENTAN [Suspect]
     Active Substance: AMBRISENTAN
     Indication: Pulmonary arterial hypertension
     Route: 048
     Dates: start: 20200427, end: 20200520
  25. SPIRONOLACTONE [Concomitant]
     Active Substance: SPIRONOLACTONE
     Indication: Heart failure with preserved ejection fraction
     Dosage: DOSE UNKNOWN
     Dates: start: 201311, end: 202004
  26. SPIRONOLACTONE [Concomitant]
     Active Substance: SPIRONOLACTONE
     Dosage: DOSE UNKNOWN
     Dates: start: 20200421
  27. SPIRONOLACTONE [Concomitant]
     Active Substance: SPIRONOLACTONE
     Dosage: DOSE UNKNOWN
     Dates: start: 202004, end: 202004
  28. DIART [Concomitant]
     Indication: Heart failure with preserved ejection fraction
     Dosage: DOSE UNKNOWN
     Dates: start: 201311
  29. DIART [Concomitant]
     Dosage: DOSE UNKNOWN
     Dates: start: 20200421
  30. SAMSCA [Concomitant]
     Active Substance: TOLVAPTAN
     Indication: Product used for unknown indication
     Route: 048
     Dates: start: 20200628, end: 2020
  31. SAMSCA [Concomitant]
     Active Substance: TOLVAPTAN
     Route: 048
     Dates: start: 202007
  32. DOPAMINE HYDROCHLORIDE [Concomitant]
     Active Substance: DOPAMINE HYDROCHLORIDE
     Indication: Pulmonary arterial hypertension
     Dosage: 2 GAMMA
  33. DOPAMINE HYDROCHLORIDE [Concomitant]
     Active Substance: DOPAMINE HYDROCHLORIDE
     Dosage: 5 GAMMA
  34. DOPAMINE HYDROCHLORIDE [Concomitant]
     Active Substance: DOPAMINE HYDROCHLORIDE
     Dosage: 3 GAMMA
  35. DOPAMINE HYDROCHLORIDE [Concomitant]
     Active Substance: DOPAMINE HYDROCHLORIDE
     Dosage: 2 GAMMA
  36. DOPAMINE HYDROCHLORIDE [Concomitant]
     Active Substance: DOPAMINE HYDROCHLORIDE
     Dosage: 3 GAMMA
  37. DOPAMINE HYDROCHLORIDE [Concomitant]
     Active Substance: DOPAMINE HYDROCHLORIDE
     Dosage: 2 GAMMA
  38. DOPAMINE HYDROCHLORIDE [Concomitant]
     Active Substance: DOPAMINE HYDROCHLORIDE
     Dosage: 1 GAMMA

REACTIONS (6)
  - Right ventricular failure [Recovered/Resolved]
  - Renal impairment [Recovered/Resolved]
  - Weight increased [Unknown]
  - Inferior vena cava dilatation [Unknown]
  - Cardiothoracic ratio increased [Recovered/Resolved]
  - Diarrhoea [Recovered/Resolved]

NARRATIVE: CASE EVENT DATE: 20200507
